FAERS Safety Report 7526256-4 (Version None)
Quarter: 2011Q2

REPORT INFORMATION
  Report Type: 
  Country: None (occurrence: None)
  Receive Date: 20110603
  Receipt Date: 20110603
  Transmission Date: 20111010
  Serious: Yes (Hospitalization)
  Sender: FDA-Public Use
  Company Number: None

PATIENT
  Age: 90 Year
  Sex: Female
  Weight: 63 kg

DRUGS (1)
  1. CERTOLIZUMAB [Suspect]
     Indication: RHEUMATOID ARTHRITIS
     Dosage: 400 MG EVERY 2 WEEKS SQ
     Route: 058
     Dates: end: 20110519

REACTIONS (4)
  - BLOOD CULTURE POSITIVE [None]
  - UROSEPSIS [None]
  - ESCHERICHIA TEST POSITIVE [None]
  - CULTURE URINE POSITIVE [None]
